FAERS Safety Report 21663252 (Version 1)
Quarter: 2022Q4

REPORT INFORMATION
  Report Type: Spontaneous
  Country: US (occurrence: None)
  Receive Date: 20221129
  Receipt Date: 20221129
  Transmission Date: 20230113
  Serious: No
  Sender: FDA-Public Use
  Company Number: None

PATIENT
  Age: 60 Year
  Sex: Male
  Weight: 126 kg

DRUGS (1)
  1. ENTYVIO [Suspect]
     Active Substance: VEDOLIZUMAB
     Indication: Colitis ulcerative
     Dosage: OTHER FREQUENCY : EVERY 56 DAYS;?
     Route: 041
     Dates: start: 20220802

REACTIONS (6)
  - Chest pain [None]
  - Abdominal pain upper [None]
  - Abdominal pain [None]
  - Heart rate irregular [None]
  - Arrhythmia [None]
  - Infusion related reaction [None]

NARRATIVE: CASE EVENT DATE: 20221123
